FAERS Safety Report 9165962 (Version 3)
Quarter: 2014Q4

REPORT INFORMATION
  Report Type: Spontaneous
  Country: US (occurrence: US)
  Receive Date: 20130315
  Receipt Date: 20141103
  Transmission Date: 20150529
  Serious: Yes (Hospitalization)
  Sender: FDA-Public Use
  Company Number: US-009507513-1303USA006769

PATIENT
  Sex: Male
  Weight: 84.35 kg

DRUGS (1)
  1. PROPECIA [Suspect]
     Active Substance: FINASTERIDE
     Indication: ALOPECIA
     Dosage: 1 MG, QD
     Route: 048
     Dates: start: 1997, end: 2012

REACTIONS (9)
  - Anxiety [Not Recovered/Not Resolved]
  - Diabetes mellitus [Unknown]
  - Non-alcoholic steatohepatitis [Unknown]
  - Sexual dysfunction [Not Recovered/Not Resolved]
  - Diverticulitis [Unknown]
  - Erectile dysfunction [Not Recovered/Not Resolved]
  - Psychosexual disorder [Unknown]
  - Diverticulum [Unknown]
  - Depression [Not Recovered/Not Resolved]

NARRATIVE: CASE EVENT DATE: 20010410
